FAERS Safety Report 6619661-1 (Version None)
Quarter: 2010Q1

REPORT INFORMATION
  Report Type: 
  Country: None (occurrence: None)
  Receive Date: 20100303
  Receipt Date: 20100216
  Transmission Date: 20100710
  Serious: Yes (Death)
  Sender: FDA-Public Use
  Company Number: 2010020085

PATIENT
  Age: 28 Year
  Sex: Female

DRUGS (7)
  1. CARISOPRODOL [Suspect]
  2. HYDROCODONE [Suspect]
  3. IBUPROFEN [Suspect]
  4. ACYCLOVIR [Suspect]
  5. AZITHROMYCIN [Suspect]
  6. METRONIDAZOLE [Suspect]
  7. GUAIFENESIN AND PSEUDOEPHEDRINE HYDROCHLORIDE [Suspect]

REACTIONS (2)
  - CARDIAC ARREST [None]
  - RESPIRATORY ARREST [None]
